FAERS Safety Report 6534290-6 (Version None)
Quarter: 2010Q1

REPORT INFORMATION
  Report Type: 
  Country: None (occurrence: None)
  Receive Date: 20100112
  Receipt Date: 20100107
  Transmission Date: 20100710
  Serious: Yes (Life-Threatening, Hospitalization)
  Sender: FDA-Public Use
  Company Number: DE-ROCHE-628871

PATIENT
  Sex: Male
  Weight: 68 kg

DRUGS (2)
  1. PEG-INTERFERON A-2A (RO 25-8310) [Suspect]
     Route: 058
     Dates: start: 20090323
  2. RIBAVIRIN [Suspect]
     Route: 065
     Dates: start: 20090323

REACTIONS (1)
  - LOSS OF CONSCIOUSNESS [None]
